FAERS Safety Report 6515576-8 (Version None)
Quarter: 2009Q4

REPORT INFORMATION
  Report Type: 
  Country: None (occurrence: None)
  Receive Date: 20091223
  Receipt Date: 20091217
  Transmission Date: 20100525
  Serious: Yes (Hospitalization)
  Sender: FDA-Public Use
  Company Number: IT-BRISTOL-MYERS SQUIBB COMPANY-14801211

PATIENT
  Age: 45 Year
  Sex: Male

DRUGS (4)
  1. BARACLUDE [Suspect]
     Indication: HEPATITIS B
     Dates: start: 20090919
  2. OMEPRAZOLE [Concomitant]
     Dosage: SINCE 2 YRS
  3. LUVION [Concomitant]
     Dosage: 100MG CAPS
     Route: 048
  4. NORMIX [Concomitant]
     Dosage: 200MG TABS
     Route: 048

REACTIONS (2)
  - HEPATIC CIRRHOSIS [None]
  - TRANSAMINASES INCREASED [None]
